FAERS Safety Report 13701116 (Version 1)
Quarter: 2017Q2

REPORT INFORMATION
  Report Type: Spontaneous
  Country: US (occurrence: US)
  Receive Date: 20170629
  Receipt Date: 20170629
  Transmission Date: 20170830
  Serious: No
  Sender: FDA-Public Use
  Company Number: US-JNJFOC-20170314794

PATIENT
  Sex: Female
  Weight: 45.36 kg

DRUGS (1)
  1. PROPULSID [Suspect]
     Active Substance: CISAPRIDE
     Indication: IMPAIRED GASTRIC EMPTYING
     Route: 048
     Dates: start: 201610

REACTIONS (1)
  - Anxiety [Unknown]
